FAERS Safety Report 5820392-6 (Version None)
Quarter: 2008Q3

REPORT INFORMATION
  Report Type: 
  Country: None (occurrence: None)
  Receive Date: 20080724
  Receipt Date: 20070622
  Transmission Date: 20090109
  Serious: No
  Sender: FDA-Public Use
  Company Number: A0659709A

PATIENT
  Age: 62 Year
  Sex: Female

DRUGS (5)
  1. AVANDIA [Suspect]
     Dosage: 4MG TWICE PER DAY
     Route: 048
     Dates: start: 20030101
  2. GLYBURIDE [Concomitant]
  3. UNKNOWN MEDICATION [Concomitant]
  4. ZYRTEC-D 12 HOUR [Concomitant]
  5. INSULIN [Concomitant]

REACTIONS (1)
  - CHEST DISCOMFORT [None]
